FAERS Safety Report 23364813 (Version 2)
Quarter: 2024Q1

REPORT INFORMATION
  Report Type: Other
  Country: PL (occurrence: PL)
  Receive Date: 20240104
  Receipt Date: 20240318
  Transmission Date: 20240409
  Serious: Yes (Other)
  Sender: FDA-Public Use
  Company Number: PL-ORPHANEU-2023009306

PATIENT

DRUGS (9)
  1. OSILODROSTAT [Suspect]
     Active Substance: OSILODROSTAT
     Indication: Pituitary-dependent Cushing^s syndrome
     Dosage: 2 MG, TWICE A DAY
     Route: 065
  2. OSILODROSTAT [Suspect]
     Active Substance: OSILODROSTAT
     Dosage: EVERY 4 WEEKS WITH AN ESCALATION SEQUENCE OF 5 TO 10 MG BID UNTIL WEEK 12
     Route: 065
  3. OSILODROSTAT [Suspect]
     Active Substance: OSILODROSTAT
     Dosage: 30 MG BID
     Route: 065
  4. OSILODROSTAT [Suspect]
     Active Substance: OSILODROSTAT
     Dosage: 20 MG BID
     Route: 065
  5. OSILODROSTAT [Suspect]
     Active Substance: OSILODROSTAT
     Dosage: 15 MG BID
     Route: 065
  6. OSILODROSTAT [Suspect]
     Active Substance: OSILODROSTAT
     Dosage: 25 MG BID ON WEEK 64
     Route: 065
  7. METFORMIN [Concomitant]
     Active Substance: METFORMIN HYDROCHLORIDE
     Indication: Impaired fasting glucose
  8. RAMIPRIL [Concomitant]
     Active Substance: RAMIPRIL
     Indication: Hypertension
     Dosage: UNK
  9. RAMIPRIL [Concomitant]
     Active Substance: RAMIPRIL
     Dosage: INCREASED

REACTIONS (5)
  - Adrenal insufficiency [Unknown]
  - 11-deoxycorticosterone increased [Recovering/Resolving]
  - Hypertension [Recovered/Resolved]
  - Alanine aminotransferase increased [Unknown]
  - Hypokalaemia [Unknown]
